FAERS Safety Report 11539850 (Version 1)
Quarter: 2015Q3

REPORT INFORMATION
  Report Type: Spontaneous
  Country: FR (occurrence: FR)
  Receive Date: 20150923
  Receipt Date: 20150923
  Transmission Date: 20151125
  Serious: Yes (Hospitalization)
  Sender: FDA-Public Use
  Company Number: FR-ELI_LILLY_AND_COMPANY-FR201509005148

PATIENT
  Age: 98 Year
  Sex: Female

DRUGS (7)
  1. KARDEGIC [Interacting]
     Active Substance: ASPIRIN LYSINE
     Indication: ANGINA PECTORIS
     Dosage: 75 MG, QD
     Route: 048
  2. ZOLPIDEM [Concomitant]
     Active Substance: ZOLPIDEM\ZOLPIDEM TARTRATE
     Dosage: 1 DF, UNK
  3. NITRIDERM [Concomitant]
     Active Substance: NITROGLYCERIN
     Dosage: 1 DF, UNK
  4. LANSOPRAZOL [Concomitant]
     Active Substance: LANSOPRAZOLE
     Dosage: 1 DF, EACH EVENING
  5. PARACETAMOL [Concomitant]
     Active Substance: ACETAMINOPHEN
     Dosage: 1 DF, PRN
  6. CYMBALTA [Suspect]
     Active Substance: DULOXETINE HYDROCHLORIDE
     Indication: PRODUCT USED FOR UNKNOWN INDICATION
     Dosage: 30 MG, QD
     Route: 048
  7. LYRICA [Concomitant]
     Active Substance: PREGABALIN
     Dosage: 3 DF, QD

REACTIONS (6)
  - Aortic stenosis [Unknown]
  - Radiation proctitis [Unknown]
  - Drug interaction [Unknown]
  - Rectal haemorrhage [Recovered/Resolved]
  - Anaemia [Not Recovered/Not Resolved]
  - Diverticulum [Unknown]

NARRATIVE: CASE EVENT DATE: 201506
